FAERS Safety Report 15356919 (Version 1)
Quarter: 2018Q3

REPORT INFORMATION
  Report Type: Spontaneous
  Country: US (occurrence: US)
  Receive Date: 20180906
  Receipt Date: 20180906
  Transmission Date: 20181010
  Serious: No
  Sender: FDA-Public Use
  Company Number: US-SA-2018SA247275

PATIENT
  Sex: Male

DRUGS (1)
  1. DULCOEASE [Suspect]
     Active Substance: DOCUSATE SODIUM
     Indication: CONSTIPATION
     Dosage: 1 TO 3 CAPSULES DAILY. THIS DOSE MAY BE TAKEN AS A SINGLE DAILY DOSE OR IN DIVIDED DOSES.
     Route: 048

REACTIONS (1)
  - Drug effect incomplete [Unknown]
